FAERS Safety Report 23242743 (Version 1)
Quarter: 2023Q4

REPORT INFORMATION
  Report Type: Spontaneous
  Country: CA (occurrence: CA)
  Receive Date: 20231129
  Receipt Date: 20231129
  Transmission Date: 20240110
  Serious: Yes (Other)
  Sender: FDA-Public Use
  Company Number: CA-JNJFOC-20220731574

PATIENT
  Sex: Male

DRUGS (2)
  1. ACUVUE THERAVISION WITH KETOTIFEN [Suspect]
     Active Substance: KETOTIFEN FUMARATE
     Indication: Product used for unknown indication
     Route: 065
  2. WARFARIN [Suspect]
     Active Substance: WARFARIN

REACTIONS (4)
  - Conjunctival haemorrhage [Unknown]
  - Eye haematoma [Unknown]
  - Eye irritation [Unknown]
  - Foreign body sensation in eyes [Unknown]

NARRATIVE: CASE EVENT DATE: 20210501
